FAERS Safety Report 19423838 (Version 1)
Quarter: 2021Q2

REPORT INFORMATION
  Report Type: Other
  Country: PT (occurrence: PT)
  Receive Date: 20210616
  Receipt Date: 20210616
  Transmission Date: 20210717
  Serious: Yes (Other)
  Sender: FDA-Public Use
  Company Number: PT-ROCHE-2847555

PATIENT
  Age: 47 Year
  Sex: Male

DRUGS (7)
  1. CLOBAZAM. [Concomitant]
     Active Substance: CLOBAZAM
  2. ESCITALOPRAM [Concomitant]
     Active Substance: ESCITALOPRAM OXALATE
  3. LOPINAVIR/RITONAVIR [Concomitant]
     Active Substance: LOPINAVIR\RITONAVIR
  4. REMDESIVIR. [Concomitant]
     Active Substance: REMDESIVIR
  5. TOCILIZUMAB. [Suspect]
     Active Substance: TOCILIZUMAB
     Indication: RESPIRATORY FAILURE
     Dosage: ADMINISTERED ONCE ON THE SECOND DAY OF HOSPITALIZATION.
     Route: 065
  6. REMDESIVIR. [Concomitant]
     Active Substance: REMDESIVIR
  7. TOCILIZUMAB. [Suspect]
     Active Substance: TOCILIZUMAB
     Indication: COVID-19 PNEUMONIA

REACTIONS (3)
  - Hepatitis C [Not Recovered/Not Resolved]
  - Off label use [Unknown]
  - Hepatitis B surface antibody negative [Unknown]
